FAERS Safety Report 9506635 (Version 2)
Quarter: 2013Q3

REPORT INFORMATION
  Report Type: Report from Study
  Country: GB (occurrence: GB)
  Receive Date: 20130907
  Receipt Date: 20130907
  Transmission Date: 20140515
  Serious: Yes (Other)
  Sender: FDA-Public Use
  Company Number: GB-BRISTOL-MYERS SQUIBB COMPANY-13376314

PATIENT
  Age: 60 Year
  Sex: Female

DRUGS (4)
  1. DASATINIB [Suspect]
     Indication: CHRONIC MYELOID LEUKAEMIA
     Route: 048
     Dates: start: 20060309, end: 20060503
  2. ZOTON [Concomitant]
     Dates: start: 20060426
  3. COD LIVER OIL [Concomitant]
     Dates: start: 2001
  4. GARLIC [Concomitant]
     Dates: start: 2001

REACTIONS (1)
  - Febrile neutropenia [Recovered/Resolved]
